FAERS Safety Report 4268761-2 (Version None)
Quarter: 2004Q1

REPORT INFORMATION
  Report Type: 
  Country: None (occurrence: None)
  Receive Date: 20040112
  Receipt Date: 20031202
  Transmission Date: 20041129
  Serious: Yes (Death)
  Sender: FDA-Public Use
  Company Number: PL-BRISTOL-MYERS SQUIBB COMPANY-12446639

PATIENT
  Age: 59 Year
  Sex: Male

DRUGS (9)
  1. CISPLATIN [Suspect]
     Indication: NON-SMALL CELL LUNG CANCER
     Route: 042
     Dates: start: 20030609, end: 20031126
  2. PACLITAXEL [Suspect]
     Indication: NON-SMALL CELL LUNG CANCER
     Route: 042
     Dates: start: 20030609, end: 20031126
  3. ATROVENT [Concomitant]
     Indication: CHRONIC OBSTRUCTIVE AIRWAYS DISEASE
     Dates: start: 20030505
  4. FORADIL [Concomitant]
     Indication: CHRONIC OBSTRUCTIVE AIRWAYS DISEASE
     Dates: start: 20030505
  5. DOLCONTRAL [Concomitant]
     Indication: PREMEDICATION
     Route: 058
     Dates: start: 20031126, end: 20031126
  6. CLEMASTINE [Concomitant]
     Indication: PREMEDICATION
     Route: 042
     Dates: start: 20031126, end: 20031126
  7. DEXAMETHASONE SODIUM PHOSPHATE [Concomitant]
     Indication: PREMEDICATION
     Route: 042
     Dates: start: 20031126, end: 20031126
  8. ZANTAC [Concomitant]
     Indication: PREMEDICATION
     Route: 042
     Dates: start: 20031126, end: 20031126
  9. ZOFRAN [Concomitant]
     Indication: PREMEDICATION
     Route: 042
     Dates: start: 20031126, end: 20031126

REACTIONS (8)
  - CARDIO-RESPIRATORY ARREST [None]
  - CYANOSIS [None]
  - HAEMATOCRIT DECREASED [None]
  - LEUKOCYTOSIS [None]
  - MONOCYTOSIS [None]
  - NEUTROPHILIA [None]
  - PULMONARY EMBOLISM [None]
  - TACHYCARDIA [None]
